FAERS Safety Report 17004783 (Version 1)
Quarter: 2019Q4

REPORT INFORMATION
  Report Type: Spontaneous
  Country: US (occurrence: US)
  Receive Date: 20191107
  Receipt Date: 20191107
  Transmission Date: 20200122
  Serious: Yes (Other)
  Sender: FDA-Public Use
  Company Number: US-HORIZON-PEN-0943-2019

PATIENT
  Age: 74 Year
  Sex: Female

DRUGS (2)
  1. INSULIN [Concomitant]
     Active Substance: INSULIN NOS
     Dosage: 1 UNIT OF INSULIN EVERY DAY
  2. PENNSAID [Suspect]
     Active Substance: DICLOFENAC SODIUM
     Indication: PAIN IN EXTREMITY
     Dosage: TWICE DAILY

REACTIONS (5)
  - Fluid retention [Unknown]
  - Peripheral swelling [Unknown]
  - Burning sensation [Unknown]
  - Off label use [Unknown]
  - Wound [Unknown]
